FAERS Safety Report 22308142 (Version 2)
Quarter: 2023Q2

REPORT INFORMATION
  Report Type: Spontaneous
  Country: GB (occurrence: GB)
  Receive Date: 20230511
  Receipt Date: 20230531
  Transmission Date: 20230721
  Serious: Yes (Hospitalization)
  Sender: FDA-Public Use
  Company Number: GB-MYLANLABS-2023M1045977

PATIENT
  Age: 65 Year
  Sex: Male

DRUGS (2)
  1. CLOZARIL [Suspect]
     Active Substance: CLOZAPINE
     Indication: Schizophrenia
     Dosage: UNK
     Route: 048
     Dates: start: 20200421
  2. CLOZARIL [Suspect]
     Active Substance: CLOZAPINE
     Dosage: 2625 MILLIGRAM QD (375 MG X 7)
     Route: 048
     Dates: start: 20200425, end: 20230426

REACTIONS (4)
  - Overdose [Unknown]
  - Neutrophilia [Unknown]
  - Leukocytosis [Unknown]
  - Therapy interrupted [Unknown]

NARRATIVE: CASE EVENT DATE: 20230425
